FAERS Safety Report 17079954 (Version 1)
Quarter: 2019Q4

REPORT INFORMATION
  Report Type: Spontaneous
  Country: US (occurrence: US)
  Receive Date: 20191029
  Receipt Date: 20191029
  Transmission Date: 20200122
  Serious: No
  Sender: FDA-Public Use
  Company Number: None

PATIENT
  Age: 48 Year
  Sex: Female
  Weight: 65.77 kg

DRUGS (12)
  1. FLAXSEED [Concomitant]
     Active Substance: FLAX SEED
  2. NARATRIPTAN [Suspect]
     Active Substance: NARATRIPTAN HYDROCHLORIDE
     Indication: MIGRAINE
     Dosage: ?          QUANTITY:2.5 MG MILLIGRAM(S);?
     Route: 048
     Dates: end: 20170603
  3. PROBIOTICS [Concomitant]
     Active Substance: PROBIOTICS NOS
  4. DEPLIN [Concomitant]
     Active Substance: LEVOMEFOLATE CALCIUM
  5. ESTRADIOL. [Concomitant]
     Active Substance: ESTRADIOL
  6. FLONASE [Concomitant]
     Active Substance: FLUTICASONE PROPIONATE
  7. CLONAZEPAM. [Concomitant]
     Active Substance: CLONAZEPAM
  8. CITALOPRAM [Concomitant]
     Active Substance: CITALOPRAM HYDROBROMIDE
  9. PROGESTERONE. [Concomitant]
     Active Substance: PROGESTERONE
  10. ESTRADIOL. [Concomitant]
     Active Substance: ESTRADIOL
  11. IRON [Concomitant]
     Active Substance: IRON
  12. MSM [Concomitant]
     Active Substance: DIMETHYL SULFONE

REACTIONS (4)
  - Lip erythema [None]
  - Drug hypersensitivity [None]
  - Lip swelling [None]
  - Lip pain [None]

NARRATIVE: CASE EVENT DATE: 20170603
